FAERS Safety Report 9854890 (Version 1)
Quarter: 2014Q1

REPORT INFORMATION
  Report Type: Spontaneous
  Country: DE (occurrence: DE)
  Receive Date: 20140130
  Receipt Date: 20140130
  Transmission Date: 20141002
  Serious: Yes (Life-Threatening, Hospitalization)
  Sender: FDA-Public Use
  Company Number: GXKR2014DE000656

PATIENT
  Sex: 0

DRUGS (1)
  1. SUMATRIPTAN [Suspect]
     Indication: OFF LABEL USE
     Dosage: 100 MG, ONCE/SINGLE
     Route: 048

REACTIONS (4)
  - Angina unstable [Recovered/Resolved]
  - Arteriospasm coronary [Recovered/Resolved]
  - Electrocardiogram ST segment elevation [Recovered/Resolved]
  - Off label use [Recovered/Resolved]
